FAERS Safety Report 13454252 (Version 1)
Quarter: 2017Q2

REPORT INFORMATION
  Report Type: Spontaneous
  Country: US (occurrence: US)
  Receive Date: 20170418
  Receipt Date: 20170418
  Transmission Date: 20170830
  Serious: No
  Sender: FDA-Public Use
  Company Number: US-ALLERGAN-1669131US

PATIENT
  Sex: Male

DRUGS (6)
  1. TAMSULOISIN [Concomitant]
     Dosage: 0.4 MG, QD
  2. FINASTERIDE. [Concomitant]
     Active Substance: FINASTERIDE
     Dosage: 5 MG, QD
  3. DIGOXIN. [Concomitant]
     Active Substance: DIGOXIN
     Dosage: 0.125 MG, QD
  4. WARFARIN [Concomitant]
     Active Substance: WARFARIN
     Dosage: UNK UNK, UNKNOWN
  5. LUMIGAN [Suspect]
     Active Substance: BIMATOPROST
     Indication: GLAUCOMA
     Dosage: 2 GTT, QHS
     Route: 047
     Dates: start: 20160519, end: 201609
  6. TAZTIA XT [Concomitant]
     Active Substance: DILTIAZEM HYDROCHLORIDE
     Dosage: 120 MG, QD

REACTIONS (7)
  - Hair colour changes [Unknown]
  - Skin hyperpigmentation [Recovering/Resolving]
  - Wrong technique in product usage process [Unknown]
  - Eye discharge [Unknown]
  - Growth of eyelashes [Unknown]
  - Vision blurred [Recovered/Resolved]
  - Eyelash hyperpigmentation [Unknown]

NARRATIVE: CASE EVENT DATE: 2016
